FAERS Safety Report 11887138 (Version 1)
Quarter: 2016Q1

REPORT INFORMATION
  Report Type: Spontaneous
  Country: US (occurrence: US)
  Receive Date: 20160104
  Receipt Date: 20160104
  Transmission Date: 20160526
  Serious: Yes (Hospitalization)
  Sender: FDA-Public Use
  Company Number: US-BAYER-2015-497246

PATIENT
  Age: 46 Year
  Sex: Female
  Weight: 75.74 kg

DRUGS (3)
  1. METHOTREXATE [Suspect]
     Active Substance: METHOTREXATE
     Indication: RHEUMATOID ARTHRITIS
     Dosage: UNK
  2. ALEVE [Suspect]
     Active Substance: NAPROXEN SODIUM
     Dosage: 250 MG, BID
     Route: 048
     Dates: start: 20140515
  3. ADALIMUMAB [Suspect]
     Active Substance: ADALIMUMAB
     Indication: RHEUMATOID ARTHRITIS
     Dosage: UNK

REACTIONS (5)
  - Syncope [None]
  - Product use issue [None]
  - Gastrooesophageal reflux disease [None]
  - Gastritis [None]
  - Abdominal pain [None]

NARRATIVE: CASE EVENT DATE: 20151117
